FAERS Safety Report 14350841 (Version 6)
Quarter: 2024Q4

REPORT INFORMATION
  Report Type: Spontaneous
  Country: JP (occurrence: JP)
  Receive Date: 20180104
  Receipt Date: 20241011
  Transmission Date: 20250115
  Serious: Yes (Other)
  Sender: PFIZER
  Company Number: JP-MLMSERVICE-20171222-1011404-1

PATIENT
  Age: 75 Year
  Sex: Male

DRUGS (6)
  1. OXALIPLATIN [Suspect]
     Active Substance: OXALIPLATIN
     Indication: Rectal cancer
     Dosage: 180 MG, (130 MG/M2, 1 TIME)
     Dates: start: 201304
  2. OXALIPLATIN [Suspect]
     Active Substance: OXALIPLATIN
     Dosage: 140 MG, UNK (3 TIMES)
  3. CAPECITABINE [Suspect]
     Active Substance: CAPECITABINE
     Indication: Rectal cancer
     Dosage: 3000 MG,  DAILY (2000 MG/M2 D AYS 1-14) DAILY
     Dates: start: 201304
  4. CAPECITABINE [Suspect]
     Active Substance: CAPECITABINE
     Dosage: 2400 MG, DAILY (REDUCED)
  5. CAPECITABINE [Suspect]
     Active Substance: CAPECITABINE
     Dosage: 1800 MG, DAILY (REDUCED)
  6. CAPECITABINE [Suspect]
     Active Substance: CAPECITABINE
     Dosage: 1200 MG, DAILY (REDUCED, FROM THE FOURTH COURSE)

REACTIONS (2)
  - Hepatotoxicity [Recovered/Resolved]
  - Alcoholic liver disease [Recovered/Resolved]
